FAERS Safety Report 9210715 (Version 1)
Quarter: 2013Q2

REPORT INFORMATION
  Report Type: Spontaneous
  Country: US (occurrence: US)
  Receive Date: 20130404
  Receipt Date: 20130404
  Transmission Date: 20140414
  Serious: Yes (Hospitalization)
  Sender: FDA-Public Use
  Company Number: US-TEVA-396009USA

PATIENT
  Age: 65 Year
  Sex: Female

DRUGS (3)
  1. PROMETHAZINE [Suspect]
     Indication: NAUSEA
     Route: 065
  2. DIPHENHYDRAMINE [Suspect]
     Indication: NAUSEA
     Route: 042
  3. ANAESTHETICS, GENERAL [Suspect]

REACTIONS (2)
  - Restless legs syndrome [Recovered/Resolved]
  - Condition aggravated [Recovered/Resolved]
